FAERS Safety Report 22304071 (Version 3)
Quarter: 2023Q2

REPORT INFORMATION
  Report Type: Spontaneous
  Country: US (occurrence: US)
  Receive Date: 20230510
  Receipt Date: 20230525
  Transmission Date: 20230722
  Serious: Yes (Death, Hospitalization)
  Sender: FDA-Public Use
  Company Number: US-PFIZER INC-PV202300081544

PATIENT
  Sex: Male

DRUGS (2)
  1. PAXLOVID [Suspect]
     Active Substance: NIRMATRELVIR\RITONAVIR
     Indication: COVID-19 treatment
     Dosage: 3 DF, 2X/DAY [PF-07321332 300 MG]/[RITONAVIR 100 MG]; 2X/DAY
     Route: 048
     Dates: start: 202210, end: 202210
  2. MYSOLINE [Concomitant]
     Active Substance: PRIMIDONE
     Indication: Tremor
     Dosage: UNK

REACTIONS (4)
  - Death [Fatal]
  - Mental status changes [Unknown]
  - Contraindicated product administered [Unknown]
  - Anticonvulsant drug level above therapeutic [Unknown]

NARRATIVE: CASE EVENT DATE: 20221001
